FAERS Safety Report 25897314 (Version 1)
Quarter: 2025Q4

REPORT INFORMATION
  Report Type: Spontaneous
  Country: US (occurrence: US)
  Receive Date: 20251008
  Receipt Date: 20251008
  Transmission Date: 20260118
  Serious: No
  Sender: EPIC PHARM
  Company Number: US-EPICPHARMA-US-2025EPCSPO01063

PATIENT
  Sex: Female

DRUGS (67)
  1. RIFAMPIN [Suspect]
     Active Substance: RIFAMPIN
     Indication: Product used for unknown indication
     Route: 065
  2. ETHAMBUTOL HYDROCHLORIDE [Suspect]
     Active Substance: ETHAMBUTOL HYDROCHLORIDE
     Indication: Mycobacterium avium complex infection
     Route: 048
  3. ETHAMBUTOL HYDROCHLORIDE [Suspect]
     Active Substance: ETHAMBUTOL HYDROCHLORIDE
     Indication: Mycobacterium abscessus infection
  4. ETHAMBUTOL HYDROCHLORIDE [Suspect]
     Active Substance: ETHAMBUTOL HYDROCHLORIDE
     Indication: Bronchiectasis
  5. ETHAMBUTOL HYDROCHLORIDE [Suspect]
     Active Substance: ETHAMBUTOL HYDROCHLORIDE
     Indication: Rheumatoid arthritis
  6. ETHAMBUTOL HYDROCHLORIDE [Suspect]
     Active Substance: ETHAMBUTOL HYDROCHLORIDE
     Indication: Pulmonary embolism
  7. ETHAMBUTOL HYDROCHLORIDE [Suspect]
     Active Substance: ETHAMBUTOL HYDROCHLORIDE
     Indication: Hypothyroidism
  8. AZITHROMYCIN [Suspect]
     Active Substance: AZITHROMYCIN
     Indication: Mycobacterium avium complex infection
     Route: 048
  9. AZITHROMYCIN [Suspect]
     Active Substance: AZITHROMYCIN
     Indication: Mycobacterium abscessus infection
  10. AZITHROMYCIN [Suspect]
     Active Substance: AZITHROMYCIN
     Indication: Bronchiectasis
  11. AZITHROMYCIN [Suspect]
     Active Substance: AZITHROMYCIN
     Indication: Rheumatoid arthritis
  12. AZITHROMYCIN [Suspect]
     Active Substance: AZITHROMYCIN
     Indication: Pulmonary embolism
  13. AZITHROMYCIN [Suspect]
     Active Substance: AZITHROMYCIN
     Indication: Hypothyroidism
  14. APIXABAN [Concomitant]
     Active Substance: APIXABAN
     Route: 048
  15. APIXABAN [Concomitant]
     Active Substance: APIXABAN
  16. APIXABAN [Concomitant]
     Active Substance: APIXABAN
     Indication: Bronchiectasis
  17. APIXABAN [Concomitant]
     Active Substance: APIXABAN
     Indication: Rheumatoid arthritis
  18. APIXABAN [Concomitant]
     Active Substance: APIXABAN
  19. APIXABAN [Concomitant]
     Active Substance: APIXABAN
     Indication: Hypothyroidism
  20. ATORVASTATIN [Concomitant]
     Active Substance: ATORVASTATIN
     Route: 048
  21. ATORVASTATIN [Concomitant]
     Active Substance: ATORVASTATIN
  22. ATORVASTATIN [Concomitant]
     Active Substance: ATORVASTATIN
     Indication: Bronchiectasis
  23. ATORVASTATIN [Concomitant]
     Active Substance: ATORVASTATIN
     Indication: Rheumatoid arthritis
  24. ATORVASTATIN [Concomitant]
     Active Substance: ATORVASTATIN
  25. ATORVASTATIN [Concomitant]
     Active Substance: ATORVASTATIN
     Indication: Hypothyroidism
  26. CARVEDILOL [Concomitant]
     Active Substance: CARVEDILOL
     Route: 048
  27. CARVEDILOL [Concomitant]
     Active Substance: CARVEDILOL
  28. CARVEDILOL [Concomitant]
     Active Substance: CARVEDILOL
     Indication: Bronchiectasis
  29. CARVEDILOL [Concomitant]
     Active Substance: CARVEDILOL
     Indication: Rheumatoid arthritis
  30. CARVEDILOL [Concomitant]
     Active Substance: CARVEDILOL
  31. CARVEDILOL [Concomitant]
     Active Substance: CARVEDILOL
     Indication: Hypothyroidism
  32. PREDNISONE [Concomitant]
     Active Substance: PREDNISONE
     Route: 048
  33. PREDNISONE [Concomitant]
     Active Substance: PREDNISONE
  34. PREDNISONE [Concomitant]
     Active Substance: PREDNISONE
     Indication: Bronchiectasis
  35. PREDNISONE [Concomitant]
     Active Substance: PREDNISONE
     Indication: Rheumatoid arthritis
  36. PREDNISONE [Concomitant]
     Active Substance: PREDNISONE
  37. PREDNISONE [Concomitant]
     Active Substance: PREDNISONE
     Indication: Hypothyroidism
  38. LEFLUNOMIDE [Concomitant]
     Active Substance: LEFLUNOMIDE
     Route: 048
  39. LEFLUNOMIDE [Concomitant]
     Active Substance: LEFLUNOMIDE
  40. LEFLUNOMIDE [Concomitant]
     Active Substance: LEFLUNOMIDE
     Indication: Bronchiectasis
  41. LEFLUNOMIDE [Concomitant]
     Active Substance: LEFLUNOMIDE
     Indication: Rheumatoid arthritis
  42. LEFLUNOMIDE [Concomitant]
     Active Substance: LEFLUNOMIDE
  43. LEFLUNOMIDE [Concomitant]
     Active Substance: LEFLUNOMIDE
     Indication: Hypothyroidism
  44. VALSARTAN [Concomitant]
     Active Substance: VALSARTAN
     Route: 048
  45. VALSARTAN [Concomitant]
     Active Substance: VALSARTAN
  46. VALSARTAN [Concomitant]
     Active Substance: VALSARTAN
     Indication: Bronchiectasis
  47. VALSARTAN [Concomitant]
     Active Substance: VALSARTAN
     Indication: Rheumatoid arthritis
  48. VALSARTAN [Concomitant]
     Active Substance: VALSARTAN
  49. VALSARTAN [Concomitant]
     Active Substance: VALSARTAN
     Indication: Hypothyroidism
  50. NIFEDIPINE [Concomitant]
     Active Substance: NIFEDIPINE
     Route: 048
  51. NIFEDIPINE [Concomitant]
     Active Substance: NIFEDIPINE
  52. NIFEDIPINE [Concomitant]
     Active Substance: NIFEDIPINE
     Indication: Bronchiectasis
  53. NIFEDIPINE [Concomitant]
     Active Substance: NIFEDIPINE
     Indication: Rheumatoid arthritis
  54. NIFEDIPINE [Concomitant]
     Active Substance: NIFEDIPINE
  55. NIFEDIPINE [Concomitant]
     Active Substance: NIFEDIPINE
     Indication: Hypothyroidism
  56. LEVOTHYROXINE [Concomitant]
     Active Substance: LEVOTHYROXINE
     Dosage: 88 MCG
     Route: 048
  57. LEVOTHYROXINE [Concomitant]
     Active Substance: LEVOTHYROXINE
  58. LEVOTHYROXINE [Concomitant]
     Active Substance: LEVOTHYROXINE
     Indication: Bronchiectasis
  59. LEVOTHYROXINE [Concomitant]
     Active Substance: LEVOTHYROXINE
     Indication: Rheumatoid arthritis
  60. LEVOTHYROXINE [Concomitant]
     Active Substance: LEVOTHYROXINE
  61. LEVOTHYROXINE [Concomitant]
     Active Substance: LEVOTHYROXINE
     Indication: Hypothyroidism
  62. SULFASALAZINE [Concomitant]
     Active Substance: SULFASALAZINE
     Route: 048
  63. SULFASALAZINE [Concomitant]
     Active Substance: SULFASALAZINE
  64. SULFASALAZINE [Concomitant]
     Active Substance: SULFASALAZINE
     Indication: Bronchiectasis
  65. SULFASALAZINE [Concomitant]
     Active Substance: SULFASALAZINE
     Indication: Rheumatoid arthritis
  66. SULFASALAZINE [Concomitant]
     Active Substance: SULFASALAZINE
  67. SULFASALAZINE [Concomitant]
     Active Substance: SULFASALAZINE
     Indication: Hypothyroidism

REACTIONS (2)
  - Drug intolerance [Unknown]
  - Product use in unapproved indication [Unknown]
